FAERS Safety Report 5952200-7 (Version None)
Quarter: 2008Q4

REPORT INFORMATION
  Report Type: 
  Country: None (occurrence: None)
  Receive Date: 20081113
  Receipt Date: 20081113
  Transmission Date: 20090506
  Serious: Yes (Hospitalization, Other)
  Sender: FDA-Public Use
  Company Number: BR-ABBOTT-08P-020-0455310-00

PATIENT
  Sex: Female
  Weight: 63 kg

DRUGS (7)
  1. HUMIRA [Suspect]
     Indication: PSORIATIC ARTHROPATHY
     Route: 058
     Dates: start: 20071021, end: 20080301
  2. HUMIRA [Suspect]
     Dates: start: 20080601
  3. PREDNISONE TAB [Concomitant]
     Indication: PSORIATIC ARTHROPATHY
     Route: 048
  4. CALCIUM [Concomitant]
     Indication: DRUG USE FOR UNKNOWN INDICATION
     Dosage: 1 TAB PER DAY IN THE MORNING
     Route: 048
  5. NIMESULIDE [Concomitant]
     Indication: PSORIATIC ARTHROPATHY
     Route: 048
  6. PREDNISOLONE SODIUM PHOSPHATE [Concomitant]
     Indication: PSORIATIC ARTHROPATHY
     Route: 048
  7. GABAPENTIN [Concomitant]
     Indication: DRUG USE FOR UNKNOWN INDICATION

REACTIONS (5)
  - BRAIN COMPRESSION [None]
  - ERYTHEMA [None]
  - OEDEMA [None]
  - PAIN IN EXTREMITY [None]
  - PRURITUS [None]
